FAERS Safety Report 5463509-8 (Version None)
Quarter: 2007Q3

REPORT INFORMATION
  Report Type: 
  Country: None (occurrence: None)
  Receive Date: 20070920
  Receipt Date: 20070910
  Transmission Date: 20080115
  Serious: Yes (Hospitalization)
  Sender: FDA-Public Use
  Company Number: FR-PFIZER INC-2007075838

PATIENT
  Age: 79 Year
  Sex: Female

DRUGS (3)
  1. ACUILIX [Suspect]
     Dosage: TEXT:20MG/12.5MG
     Route: 048
  2. FLUNARIZINE [Suspect]
     Route: 048
  3. ISKEDYL [Suspect]
     Dosage: TEXT:2 DF
     Route: 048

REACTIONS (1)
  - PARKINSONISM [None]
